FAERS Safety Report 15796848 (Version 1)
Quarter: 2019Q1

REPORT INFORMATION
  Report Type: Other
  Country: CA (occurrence: CA)
  Receive Date: 20190108
  Receipt Date: 20190108
  Transmission Date: 20190417
  Serious: Yes (Death, Life-Threatening, Hospitalization)
  Sender: FDA-Public Use
  Company Number: CA-PHARMACEUTICS INTERNATIONAL, INC.-2060955

PATIENT
  Age: 62 Year
  Sex: Male

DRUGS (6)
  1. METHYLPREDNISONE [Suspect]
     Active Substance: METHYLPREDNISOLONE
     Route: 042
  2. VASOPRESSIN. [Concomitant]
     Active Substance: VASOPRESSIN
     Route: 065
  3. HYDROCORTISONE. [Suspect]
     Active Substance: HYDROCORTISONE
     Indication: PRODUCT USED FOR UNKNOWN INDICATION
     Route: 042
  4. NOREPINEPHRINE. [Concomitant]
     Active Substance: NOREPINEPHRINE
     Route: 065
  5. MEROPENEM. [Concomitant]
     Active Substance: MEROPENEM
     Route: 065
  6. VANCOMYCIN HYDROCHLORIDE. [Concomitant]
     Active Substance: VANCOMYCIN HYDROCHLORIDE
     Route: 065

REACTIONS (2)
  - Strongyloidiasis [Fatal]
  - Condition aggravated [Fatal]
